FAERS Safety Report 7902534-1 (Version None)
Quarter: 2011Q4

REPORT INFORMATION
  Report Type: 
  Country: None (occurrence: None)
  Receive Date: 20111108
  Receipt Date: 20111026
  Transmission Date: 20120403
  Serious: Yes (Hospitalization, Other)
  Sender: FDA-Public Use
  Company Number: US-ELI_LILLY_AND_COMPANY-US201111000719

PATIENT
  Sex: Female

DRUGS (17)
  1. FORTEO [Suspect]
     Indication: OSTEOPOROSIS
     Dosage: 20 MG, QD
     Dates: start: 20060101, end: 20070101
  2. FORTEO [Suspect]
     Dosage: 20 MG, QD
     Dates: end: 20111001
  3. RECLAST [Concomitant]
     Dosage: UNK
  4. VITAMIN D [Concomitant]
     Dosage: UNK, WEEKLY (1/W)
  5. FORTEO [Suspect]
     Dosage: 20 MG, QD
     Dates: start: 20110801
  6. STOOL SOFTENER [Concomitant]
     Dosage: UNK
  7. COUMADIN [Concomitant]
  8. POTASSIUM [Concomitant]
  9. OMEPRAZOLE [Concomitant]
     Dosage: UNK
  10. FUROSEMIDE [Concomitant]
  11. ASPIRIN [Concomitant]
  12. FLECAINIDE ACETATE [Concomitant]
  13. DETROL LA [Concomitant]
  14. SYNTHROID [Concomitant]
     Indication: THYROID DISORDER
  15. PRAVASTATIN [Concomitant]
     Indication: BLOOD CHOLESTEROL
  16. LORAZEPAM [Concomitant]
     Dosage: UNK
  17. DILTIAZEM HCL [Concomitant]

REACTIONS (12)
  - HEART VALVE REPLACEMENT [None]
  - PAIN [None]
  - BONE DENSITY ABNORMAL [None]
  - CONSTIPATION [None]
  - CARDIOVERSION [None]
  - DIARRHOEA [None]
  - HYPOACUSIS [None]
  - VISUAL IMPAIRMENT [None]
  - AORTIC ANEURYSM [None]
  - GASTROINTESTINAL DISORDER [None]
  - HAEMORRHOIDS [None]
  - CARDIOVASCULAR DISORDER [None]
